FAERS Safety Report 19395998 (Version 1)
Quarter: 2021Q2

REPORT INFORMATION
  Report Type: Report from Study
  Country: SE (occurrence: SE)
  Receive Date: 20210609
  Receipt Date: 20210609
  Transmission Date: 20210717
  Serious: Yes (Hospitalization, Other)
  Sender: FDA-Public Use
  Company Number: SE-TAKEDA-SE202001916

PATIENT
  Age: 75 Year
  Sex: Male
  Weight: 83 kg

DRUGS (15)
  1. ASACOL [Concomitant]
     Active Substance: MESALAMINE
     Indication: COLITIS
  2. BEHEPAN [CYANOCOBALAMIN] [Concomitant]
     Active Substance: CYANOCOBALAMIN
     Indication: PRODUCT SUBSTITUTION
  3. TEDUGLUTIDE [Suspect]
     Active Substance: TEDUGLUTIDE
     Indication: SHORT-BOWEL SYNDROME
     Dosage: 5 MILLIGRAM (0.07 MILLIGRAM/KILOGRAM DAILY DOSE), 4 DOSES PER WEEK
     Route: 065
     Dates: start: 20170327
  4. PRAMIPEXOL STADA [Concomitant]
     Indication: RESTLESS LEGS SYNDROME
     Dosage: 0.09 MILLIGRAM, PRN
     Route: 048
     Dates: start: 20200616
  5. DIKLOFENAK ORIFARM [Concomitant]
     Indication: BILIARY COLIC
     Dosage: 25 MILLIGRAM, PRN
     Route: 048
     Dates: start: 20190627
  6. TEDUGLUTIDE [Suspect]
     Active Substance: TEDUGLUTIDE
     Indication: SHORT-BOWEL SYNDROME
     Dosage: 5 MILLIGRAM (0.07 MILLIGRAM/KILOGRAM DAILY DOSE), 4 DOSES PER WEEK
     Route: 065
     Dates: start: 20170327
  7. TEDUGLUTIDE [Suspect]
     Active Substance: TEDUGLUTIDE
     Indication: SHORT-BOWEL SYNDROME
     Dosage: 5 MILLIGRAM (0.07 MILLIGRAM/KILOGRAM DAILY DOSE), 4 DOSES PER WEEK
     Route: 065
     Dates: start: 20170327
  8. TEDUGLUTIDE [Suspect]
     Active Substance: TEDUGLUTIDE
     Dosage: 5.0 MILLIGRAM,(0.06MG/KG), QD
     Route: 065
     Dates: start: 2019
  9. TEDUGLUTIDE [Suspect]
     Active Substance: TEDUGLUTIDE
     Indication: SHORT-BOWEL SYNDROME
     Dosage: 5 MILLIGRAM (0.07 MILLIGRAM/KILOGRAM DAILY DOSE), 4 DOSES PER WEEK
     Route: 065
     Dates: start: 20170327
  10. TEDUGLUTIDE [Suspect]
     Active Substance: TEDUGLUTIDE
     Dosage: 5.0 MILLIGRAM,(0.06MG/KG), QD
     Route: 065
     Dates: start: 2019
  11. PEVARYL [ECONAZOLE] [Concomitant]
     Indication: FUNGAL SKIN INFECTION
     Dosage: 1.0 UNK, QD
     Route: 050
     Dates: start: 20190319
  12. INFLIXIMAB [Concomitant]
     Active Substance: INFLIXIMAB
     Indication: CROHN^S DISEASE
     Dosage: 600 MILLIGRAM, EVERY 8TH WEEK
     Route: 042
     Dates: start: 20210303
  13. TEDUGLUTIDE [Suspect]
     Active Substance: TEDUGLUTIDE
     Dosage: 5.0 MILLIGRAM,(0.06MG/KG), QD
     Route: 065
     Dates: start: 2019
  14. TEDUGLUTIDE [Suspect]
     Active Substance: TEDUGLUTIDE
     Dosage: 5.0 MILLIGRAM,(0.06MG/KG), QD
     Route: 065
     Dates: start: 2019
  15. FRAGMIN [Concomitant]
     Active Substance: DALTEPARIN SODIUM
     Indication: THROMBOSIS PROPHYLAXIS

REACTIONS (1)
  - Crohn^s disease [Recovered/Resolved]

NARRATIVE: CASE EVENT DATE: 20190815
